FAERS Safety Report 4577171-X (Version None)
Quarter: 2005Q1

REPORT INFORMATION
  Report Type: 
  Country: None (occurrence: None)
  Receive Date: 20050208
  Receipt Date: 20050127
  Transmission Date: 20050727
  Serious: Yes (Other)
  Sender: FDA-Public Use
  Company Number: HQWYE949628JAN05

PATIENT
  Sex: Female

DRUGS (1)
  1. PREMPRO [Suspect]
     Dosage: ORAL
     Route: 048
     Dates: start: 19990101, end: 20030101

REACTIONS (2)
  - BREAST CANCER IN SITU [None]
  - POSTOPERATIVE THROMBOSIS [None]
